FAERS Safety Report 6354327-7 (Version None)
Quarter: 2009Q3

REPORT INFORMATION
  Report Type: 
  Country: None (occurrence: None)
  Receive Date: 20090914
  Receipt Date: 20071126
  Transmission Date: 20100115
  Serious: Yes (Death, Other)
  Sender: FDA-Public Use
  Company Number: US-ASTRAZENECA-2006UW21672

PATIENT
  Age: 11082 Day
  Sex: Male
  Weight: 96.2 kg

DRUGS (7)
  1. SEROQUEL [Suspect]
     Indication: DEPRESSION
     Dosage: 200-600 MG
     Route: 048
     Dates: start: 20041119
  2. SEROQUEL [Suspect]
     Indication: SLEEP DISORDER
     Dosage: 200-600 MG
     Route: 048
     Dates: start: 20041119
  3. SEROQUEL [Suspect]
     Route: 048
     Dates: start: 20040101, end: 20051208
  4. SEROQUEL [Suspect]
     Route: 048
     Dates: start: 20040101, end: 20051208
  5. EFFEXOR [Concomitant]
     Route: 048
     Dates: start: 20041208
  6. KLONOPIN [Concomitant]
     Route: 048
     Dates: start: 20041208
  7. TOPOROL [Concomitant]
     Route: 048
     Dates: start: 20041002

REACTIONS (4)
  - ACCIDENTAL OVERDOSE [None]
  - CARDIAC ARREST [None]
  - PANCREATITIS [None]
  - RESPIRATORY ARREST [None]
